FAERS Safety Report 4652584-6 (Version None)
Quarter: 2005Q2

REPORT INFORMATION
  Report Type: 
  Country: None (occurrence: None)
  Receive Date: 20050504
  Receipt Date: 20050422
  Transmission Date: 20051028
  Serious: Yes (Other)
  Sender: FDA-Public Use
  Company Number: GB-JNJFOC-20050400081

PATIENT
  Sex: Female

DRUGS (1)
  1. OVEX [Suspect]
     Indication: DRUG USE FOR UNKNOWN INDICATION
     Route: 065

REACTIONS (5)
  - ATRIAL FLUTTER [None]
  - EXTRASYSTOLES [None]
  - HEART RATE IRREGULAR [None]
  - PALPITATIONS [None]
  - TACHYCARDIA [None]
